FAERS Safety Report 13337463 (Version 2)
Quarter: 2017Q2

REPORT INFORMATION
  Report Type: Report from Study
  Country: IT (occurrence: IT)
  Receive Date: 20170315
  Receipt Date: 20170405
  Transmission Date: 20170830
  Serious: Yes (Hospitalization)
  Sender: FDA-Public Use
  Company Number: PHHY2017IT037186

PATIENT
  Age: 59 Year
  Sex: Male
  Weight: 60 kg

DRUGS (14)
  1. SIGNIFOR [Suspect]
     Active Substance: PASIREOTIDE
     Indication: PITUITARY-DEPENDENT CUSHING^S SYNDROME
     Dosage: 0.6 MG, BID
     Route: 058
     Dates: start: 20160512, end: 20160927
  2. PANTOPRAZOLE [Concomitant]
     Active Substance: PANTOPRAZOLE
     Indication: PRODUCT USED FOR UNKNOWN INDICATION
     Dosage: 40 MG, QD
     Route: 065
  3. RAMIPRIL. [Concomitant]
     Active Substance: RAMIPRIL
     Indication: PRODUCT USED FOR UNKNOWN INDICATION
     Dosage: 2.5 MG, QD
     Route: 065
  4. TESTOSTERONE. [Concomitant]
     Active Substance: TESTOSTERONE
     Indication: PRODUCT USED FOR UNKNOWN INDICATION
     Dosage: 20 MG, QD
     Route: 065
  5. RISEDRONATO [Concomitant]
     Indication: PRODUCT USED FOR UNKNOWN INDICATION
     Dosage: 35 MG, QD
     Route: 065
  6. NALOXONE [Concomitant]
     Active Substance: NALOXONE
     Indication: PRODUCT USED FOR UNKNOWN INDICATION
     Dosage: 2 MG, BID
     Route: 065
  7. ALTIAZEM [Concomitant]
     Active Substance: DILTIAZEM HYDROCHLORIDE
     Indication: PRODUCT USED FOR UNKNOWN INDICATION
     Dosage: 60 MG, QD
     Route: 065
  8. SIGNIFOR [Suspect]
     Active Substance: PASIREOTIDE
     Dosage: 0.6 MG, QD
     Route: 058
     Dates: start: 20160928, end: 20161003
  9. OXYCODONE [Concomitant]
     Active Substance: OXYCODONE
     Indication: PRODUCT USED FOR UNKNOWN INDICATION
     Dosage: 5 MG, BID
     Route: 065
  10. ACID ACETYLSALICYLIC [Concomitant]
     Indication: PRODUCT USED FOR UNKNOWN INDICATION
     Dosage: 100 MG, QD
     Route: 065
  11. SIGNIFOR [Suspect]
     Active Substance: PASIREOTIDE
     Dosage: 0.6 MG, BID
     Route: 058
     Dates: start: 20161004
  12. LISPRO INSULIN [Concomitant]
     Active Substance: INSULIN LISPRO
     Indication: PRODUCT USED FOR UNKNOWN INDICATION
     Dosage: 200 IU/ML, BEFORE MEAL
     Route: 065
  13. INSULIN GLARGINE [Concomitant]
     Active Substance: INSULIN GLARGINE
     Indication: PRODUCT USED FOR UNKNOWN INDICATION
     Dosage: 100 IU/ML, QD
     Route: 065
  14. CALCIFEDIOL [Concomitant]
     Active Substance: CALCIFEDIOL
     Indication: PRODUCT USED FOR UNKNOWN INDICATION
     Dosage: 12 GTT, QW
     Route: 065

REACTIONS (1)
  - Blood potassium decreased [Recovered/Resolved]

NARRATIVE: CASE EVENT DATE: 20160819
